FAERS Safety Report 25088528 (Version 2)
Quarter: 2025Q2

REPORT INFORMATION
  Report Type: Spontaneous
  Country: US (occurrence: US)
  Receive Date: 20250318
  Receipt Date: 20250530
  Transmission Date: 20250717
  Serious: No
  Sender: Kenvue
  Company Number: US-KENVUE-20250206123

PATIENT
  Sex: Male

DRUGS (3)
  1. TYLENOL 8 HR ARTHRITIS PAIN [Suspect]
     Active Substance: ACETAMINOPHEN
     Indication: Pain
     Route: 048
  2. ZYRTEC [Concomitant]
     Active Substance: CETIRIZINE HYDROCHLORIDE
     Indication: Food allergy
     Route: 065
     Dates: start: 201911
  3. PEPCID [Concomitant]
     Active Substance: FAMOTIDINE
     Indication: Food allergy
     Route: 065
     Dates: start: 201911

REACTIONS (1)
  - Drug hypersensitivity [Recovered/Resolved]
